FAERS Safety Report 24812753 (Version 1)
Quarter: 2025Q1

REPORT INFORMATION
  Report Type: Spontaneous
  Country: CA (occurrence: CA)
  Receive Date: 20250107
  Receipt Date: 20250107
  Transmission Date: 20250409
  Serious: Yes (Life-Threatening)
  Sender: SANOFI AVENTIS
  Company Number: CA-SA-SAC20240514000165

PATIENT
  Age: 36 Year
  Sex: Female
  Weight: 88 kg

DRUGS (1)
  1. FERRLECIT [Suspect]
     Active Substance: SODIUM FERRIC GLUCONATE COMPLEX
     Indication: Iron deficiency anaemia
     Dosage: 125 MG, Q3W
     Route: 042
     Dates: start: 20240115, end: 20240130

REACTIONS (2)
  - Pruritus [Recovering/Resolving]
  - Urticaria [Recovering/Resolving]

NARRATIVE: CASE EVENT DATE: 20240101
